FAERS Safety Report 18228812 (Version 1)
Quarter: 2020Q3

REPORT INFORMATION
  Report Type: Spontaneous
  Country: US (occurrence: US)
  Receive Date: 20200903
  Receipt Date: 20200903
  Transmission Date: 20201103
  Serious: Yes (Hospitalization)
  Sender: FDA-Public Use
  Company Number: US-BAYER-2020-181810

PATIENT
  Age: 17 Year
  Sex: Female

DRUGS (1)
  1. ACETYLSALICYLIC ACID [Suspect]
     Active Substance: ASPIRIN
     Indication: FONTAN PROCEDURE

REACTIONS (8)
  - Product use issue [None]
  - Maternal exposure during pregnancy [None]
  - Contraindicated product administered [None]
  - Off label use [None]
  - Premature delivery [None]
  - Product use in unapproved indication [None]
  - Placenta accreta [None]
  - Procedural haemorrhage [None]
